FAERS Safety Report 13237647 (Version 1)
Quarter: 2017Q1

REPORT INFORMATION
  Report Type: Spontaneous
  Country: US (occurrence: US)
  Receive Date: 20170215
  Receipt Date: 20170215
  Transmission Date: 20170428
  Serious: Yes (Hospitalization)
  Sender: FDA-Public Use
  Company Number: None

PATIENT
  Age: 36 Year
  Sex: Female
  Weight: 75 kg

DRUGS (1)
  1. CISPLATIN. [Suspect]
     Active Substance: CISPLATIN
     Dates: end: 20170109

REACTIONS (6)
  - Haemoglobin decreased [None]
  - Therapy non-responder [None]
  - Abdominal pain [None]
  - Uterine perforation [None]
  - Nausea [None]
  - Retching [None]

NARRATIVE: CASE EVENT DATE: 20170127
